FAERS Safety Report 9270178 (Version 1)
Quarter: 2013Q2

REPORT INFORMATION
  Report Type: Spontaneous
  Country: GB (occurrence: GB)
  Receive Date: 20130503
  Receipt Date: 20130503
  Transmission Date: 20140414
  Serious: Yes (Death, Other)
  Sender: FDA-Public Use
  Company Number: GB-WATSON-2013-07268

PATIENT
  Age: 58 Year
  Sex: Female

DRUGS (1)
  1. NITROFURANTOIN (WATSON LABORATORIES) [Suspect]
     Indication: PROPHYLAXIS URINARY TRACT INFECTION
     Dosage: UNKNOWN
     Route: 065

REACTIONS (2)
  - Interstitial lung disease [Fatal]
  - Toxicity to various agents [None]
